FAERS Safety Report 6823373-9 (Version None)
Quarter: 2010Q3

REPORT INFORMATION
  Report Type: 
  Country: None (occurrence: None)
  Receive Date: 20100708
  Receipt Date: 20100630
  Transmission Date: 20110219
  Serious: Yes (Congenital Anomaly)
  Sender: FDA-Public Use
  Company Number: US-AMGEN-KDC421882

PATIENT

DRUGS (13)
  1. ENBREL [Suspect]
     Route: 064
     Dates: start: 20100128, end: 20100226
  2. SULFASALAZINE [Concomitant]
     Route: 064
     Dates: start: 20100128
  3. PRENATAL VITAMINS [Concomitant]
     Route: 064
     Dates: start: 20100128
  4. FOLIC ACID [Concomitant]
     Route: 064
     Dates: start: 20100329
  5. OMEGA-3 TRIGLYCERIDES [Concomitant]
     Route: 064
     Dates: start: 20100312
  6. IRON [Concomitant]
     Route: 064
     Dates: start: 20100403
  7. FLUTICASONE PROPIONATE [Concomitant]
     Route: 064
     Dates: start: 20100128
  8. ACETAMINOPHEN/DEXTROMETHORPHAN HBR/PSEUDOEPHEDRINE HCL [Concomitant]
     Route: 064
     Dates: start: 20100215, end: 20100527
  9. NYQUIL [Concomitant]
     Route: 064
     Dates: start: 20100215, end: 20100227
  10. TUMS [Concomitant]
     Route: 064
     Dates: start: 20100311
  11. TYLENOL [Concomitant]
     Route: 064
     Dates: start: 20100128
  12. UNSPECIFIED ANESTHETIC [Concomitant]
     Route: 064
     Dates: start: 20100515, end: 20100515
  13. POTASSIUM CHLORIDE [Concomitant]
     Dates: start: 20100515, end: 20100515

REACTIONS (3)
  - HOLOPROSENCEPHALY [None]
  - MATERNAL DRUGS AFFECTING FOETUS [None]
  - TRISOMY 13 [None]
